FAERS Safety Report 21162789 (Version 2)
Quarter: 2022Q3

REPORT INFORMATION
  Report Type: Spontaneous
  Country: CL (occurrence: CL)
  Receive Date: 20220802
  Receipt Date: 20220816
  Transmission Date: 20221026
  Serious: No
  Sender: FDA-Public Use
  Company Number: CL-ORGANON-O2207CHL002306

PATIENT
  Sex: Female

DRUGS (1)
  1. ETONOGESTREL [Suspect]
     Active Substance: ETONOGESTREL
     Dosage: 1 IMPLANT (REMOVAL DATE 30-OCT-2023)
     Route: 059
     Dates: start: 20201030

REACTIONS (8)
  - Pregnancy test negative [Unknown]
  - Pregnancy test positive [Unknown]
  - Feeling abnormal [Unknown]
  - Complication associated with device [Not Recovered/Not Resolved]
  - Amenorrhoea [Recovered/Resolved]
  - Implant site pain [Unknown]
  - Vomiting [Not Recovered/Not Resolved]
  - Dizziness [Not Recovered/Not Resolved]

NARRATIVE: CASE EVENT DATE: 20220101
